FAERS Safety Report 9163434 (Version 6)
Quarter: 2014Q1

REPORT INFORMATION
  Report Type: Spontaneous
  Country: US (occurrence: US)
  Receive Date: 20130314
  Receipt Date: 20140106
  Transmission Date: 20141002
  Serious: Yes (Life-Threatening, Hospitalization, Other)
  Sender: FDA-Public Use
  Company Number: US-MERCK-1303USA006775

PATIENT
  Sex: Male
  Weight: 112.93 kg

DRUGS (4)
  1. JANUVIA [Suspect]
     Indication: TYPE 2 DIABETES MELLITUS
     Dosage: 100 MG, UNK
     Route: 048
     Dates: start: 20080421, end: 20081212
  2. JANUMET [Suspect]
     Dosage: UNK MG, UNK
     Route: 048
     Dates: start: 20090413, end: 20101117
  3. BYETTA [Suspect]
     Indication: TYPE 2 DIABETES MELLITUS
     Dosage: UNK, QD
     Dates: start: 20070313, end: 20070819
  4. BYETTA [Suspect]
     Dosage: UNK
     Dates: start: 20070904, end: 20080330

REACTIONS (33)
  - Pancreatic carcinoma [Unknown]
  - Insulin-requiring type 2 diabetes mellitus [Unknown]
  - Pancreatectomy [Unknown]
  - Splenectomy [Unknown]
  - Pancreatic neuroendocrine tumour [Unknown]
  - Coronary artery bypass [Unknown]
  - Myocardial infarction [Unknown]
  - Basal cell carcinoma [Unknown]
  - Pancreatic pseudocyst [Unknown]
  - Pancreatic cyst [Unknown]
  - Pancreatic insufficiency [Unknown]
  - Fatigue [Unknown]
  - Gastritis [Unknown]
  - Gallbladder disorder [Unknown]
  - Duodenitis [Unknown]
  - Cholelithiasis [Unknown]
  - Liver disorder [Unknown]
  - Atelectasis [Unknown]
  - Arteriosclerosis coronary artery [Unknown]
  - Aortic calcification [Unknown]
  - Vascular calcification [Unknown]
  - Soft tissue necrosis [Unknown]
  - Musculoskeletal pain [Unknown]
  - Coronary artery disease [Unknown]
  - Pancreatic cyst [Unknown]
  - Spinal osteoarthritis [Unknown]
  - Pancreatic neoplasm [Unknown]
  - Hyperlipidaemia [Unknown]
  - Hypertension [Unknown]
  - Hepatic steatosis [Unknown]
  - Asthenia [Unknown]
  - Back pain [Unknown]
  - Nausea [Unknown]
